FAERS Safety Report 20669323 (Version 2)
Quarter: 2022Q2

REPORT INFORMATION
  Report Type: Report from Study
  Country: US (occurrence: US)
  Receive Date: 20220404
  Receipt Date: 20220425
  Transmission Date: 20220721
  Serious: Yes (Disabling)
  Sender: FDA-Public Use
  Company Number: US-NOVARTISPH-NVSC2022US074828

PATIENT
  Age: 26 Year
  Sex: Female

DRUGS (4)
  1. ADAKVEO [Suspect]
     Active Substance: CRIZANLIZUMAB-TMCA
     Indication: Sickle cell disease
     Dosage: UNK
     Route: 065
     Dates: start: 20210715, end: 20210715
  2. ADAKVEO [Suspect]
     Active Substance: CRIZANLIZUMAB-TMCA
     Dosage: UNK
     Route: 065
     Dates: start: 20220316
  3. DECADRON [Suspect]
     Active Substance: DEXAMETHASONE
     Indication: Sickle cell anaemia with crisis
     Dosage: UNK
     Route: 065
  4. DECADRON [Suspect]
     Active Substance: DEXAMETHASONE
     Indication: Bone pain

REACTIONS (2)
  - Plantar fasciitis [Not Recovered/Not Resolved]
  - Blood glucose increased [Recovering/Resolving]

NARRATIVE: CASE EVENT DATE: 20220325
